FAERS Safety Report 10438352 (Version 1)
Quarter: 2014Q3

REPORT INFORMATION
  Report Type: Spontaneous
  Country: US (occurrence: US)
  Receive Date: 20140908
  Receipt Date: 20140908
  Transmission Date: 20150326
  Serious: No
  Sender: FDA-Public Use
  Company Number: US-BRISTOL-MYERS SQUIBB COMPANY-19842558

PATIENT
  Sex: Male

DRUGS (5)
  1. ABILIFY [Suspect]
     Active Substance: ARIPIPRAZOLE
     Dates: start: 2013
  2. ZYPREXA [Concomitant]
     Active Substance: OLANZAPINE
     Dates: start: 2013
  3. PROLIXIN [Concomitant]
     Active Substance: FLUPHENAZINE HYDROCHLORIDE
     Dates: start: 2013
  4. ABILIFY MAINTENA [Suspect]
     Active Substance: ARIPIPRAZOLE
     Route: 030
     Dates: start: 2013
  5. COGENTIN [Concomitant]
     Active Substance: BENZTROPINE MESYLATE
     Dates: start: 2013

REACTIONS (1)
  - Extrapyramidal disorder [Unknown]

NARRATIVE: CASE EVENT DATE: 2013
